FAERS Safety Report 8510931-9 (Version None)
Quarter: 2012Q2

REPORT INFORMATION
  Report Type: 
  Country: None (occurrence: None)
  Receive Date: 20120406
  Receipt Date: 20120402
  Transmission Date: 20120825
  Serious: Yes (Other)
  Sender: FDA-Public Use
  Company Number: 2012-0010

PATIENT

DRUGS (2)
  1. CITALOPRAM HYDROBROMIDE [Suspect]
  2. LECOZOTAN [Suspect]

REACTIONS (1)
  - SEROTONIN SYNDROME [None]
